FAERS Safety Report 5839005-2 (Version None)
Quarter: 2008Q3

REPORT INFORMATION
  Report Type: 
  Country: None (occurrence: None)
  Receive Date: 20080808
  Receipt Date: 20080805
  Transmission Date: 20090109
  Serious: Yes (Hospitalization)
  Sender: FDA-Public Use
  Company Number: AU-BOEHRINGER INGELHEIM GMBH, GERMANY-2008-BP-12301AU

PATIENT
  Age: 75 Year
  Sex: Female

DRUGS (6)
  1. MICARDIS HCT [Suspect]
     Indication: ESSENTIAL HYPERTENSION
  2. MICARDIS [Suspect]
     Indication: ESSENTIAL HYPERTENSION
     Route: 048
     Dates: start: 20080422, end: 20080503
  3. TRAMADOL HCL [Suspect]
     Indication: PAIN
     Route: 048
     Dates: start: 20080502
  4. AUGMENTIN '125' [Suspect]
     Indication: URINARY TRACT DISORDER
     Route: 048
     Dates: start: 20080502, end: 20080503
  5. TRIMETHOPRIM [Suspect]
     Indication: URINARY TRACT DISORDER
     Route: 048
     Dates: start: 20080427, end: 20080502
  6. SIMVASTATIN [Concomitant]
     Indication: METABOLIC DISORDER
     Route: 048

REACTIONS (6)
  - CONVULSION [None]
  - HYPONATRAEMIA [None]
  - MALAISE [None]
  - NAUSEA [None]
  - URINARY TRACT INFECTION [None]
  - VOMITING [None]
